FAERS Safety Report 20740200 (Version 1)
Quarter: 2022Q2

REPORT INFORMATION
  Report Type: Spontaneous
  Country: US (occurrence: US)
  Receive Date: 20220422
  Receipt Date: 20220422
  Transmission Date: 20220721
  Serious: No
  Sender: FDA-Public Use
  Company Number: US-PFIZER INC-202101040292

PATIENT
  Age: 57 Year
  Weight: 45.351 kg

DRUGS (1)
  1. CELECOXIB [Suspect]
     Active Substance: CELECOXIB

REACTIONS (3)
  - Drug ineffective [Unknown]
  - Movement disorder [Unknown]
  - Walking disability [Unknown]
